FAERS Safety Report 9174491 (Version 1)
Quarter: 2013Q1

REPORT INFORMATION
  Report Type: Spontaneous
  Country: US (occurrence: US)
  Receive Date: 20130320
  Receipt Date: 20130320
  Transmission Date: 20140127
  Serious: No
  Sender: FDA-Public Use
  Company Number: US-009507513-1303USA007320

PATIENT
  Sex: 0

DRUGS (2)
  1. ZETIA [Suspect]
     Route: 048
  2. UNSPECIFIED INGREDIENT [Suspect]
     Dosage: UNK

REACTIONS (1)
  - Myalgia [Unknown]
